FAERS Safety Report 5527704-1 (Version None)
Quarter: 2007Q4

REPORT INFORMATION
  Report Type: 
  Country: None (occurrence: None)
  Receive Date: 20071121
  Receipt Date: 20071114
  Transmission Date: 20080405
  Serious: Yes (Life-Threatening)
  Sender: FDA-Public Use
  Company Number: MEDI-0006004

PATIENT
  Age: 9 Month
  Sex: Male
  Weight: 0.99 kg

DRUGS (2)
  1. SYNAGIS [Suspect]
     Indication: PREMATURE BABY
     Dosage: 100 MG, INTRAMUSCULAR ; 100 MG
     Route: 030
     Dates: start: 20070109, end: 20070213
  2. SYNAGIS [Suspect]
     Indication: PREMATURE BABY
     Dosage: 100 MG, INTRAMUSCULAR ; 100 MG
     Route: 030
     Dates: start: 20070109

REACTIONS (3)
  - CHEST X-RAY ABNORMAL [None]
  - OXYGEN SATURATION DECREASED [None]
  - RESPIRATORY DISORDER [None]
